FAERS Safety Report 19714641 (Version 1)
Quarter: 2021Q3

REPORT INFORMATION
  Report Type: Spontaneous
  Country: US (occurrence: US)
  Receive Date: 20210818
  Receipt Date: 20210818
  Transmission Date: 20211014
  Serious: Yes (Disabling)
  Sender: FDA-Public Use
  Company Number: None

PATIENT
  Age: 39 Year
  Sex: Female
  Weight: 56.25 kg

DRUGS (5)
  1. GABAPENTIN 300MG [Concomitant]
     Active Substance: GABAPENTIN
  2. VIVITROL [Suspect]
     Active Substance: NALTREXONE
     Indication: ALCOHOLISM
     Dates: start: 20210701, end: 20210728
  3. CHANTIX [Concomitant]
     Active Substance: VARENICLINE TARTRATE
  4. LAMICTAL [Concomitant]
     Active Substance: LAMOTRIGINE
  5. CAMPRAL 333MG [Concomitant]

REACTIONS (5)
  - Myalgia [None]
  - Arthralgia [None]
  - Hypokinesia [None]
  - Bone pain [None]
  - Loss of personal independence in daily activities [None]

NARRATIVE: CASE EVENT DATE: 20210801
